FAERS Safety Report 18336272 (Version 2)
Quarter: 2020Q4

REPORT INFORMATION
  Report Type: Spontaneous
  Country: NL (occurrence: FR)
  Receive Date: 20201001
  Receipt Date: 20201119
  Transmission Date: 20210113
  Serious: Yes (Life-Threatening, Hospitalization)
  Sender: FDA-Public Use
  Company Number: FR-FRESENIUS KABI-FK202010174

PATIENT
  Age: 48 Year
  Sex: Male
  Weight: 79 kg

DRUGS (3)
  1. SULFAMETHOXAZOLE/TRIMETHOPRIM [Suspect]
     Active Substance: SULFAMETHOXAZOLE\TRIMETHOPRIM
     Indication: STAPHYLOCOCCAL BACTERAEMIA
     Route: 048
     Dates: start: 20170816
  2. CLINDAMYCIN. [Suspect]
     Active Substance: CLINDAMYCIN
     Indication: STAPHYLOCOCCAL BACTERAEMIA
     Route: 065
     Dates: start: 20170816
  3. PARACETAMOL [Concomitant]
     Active Substance: ACETAMINOPHEN
     Indication: PRODUCT USED FOR UNKNOWN INDICATION
     Route: 065
     Dates: start: 20170804

REACTIONS (15)
  - Acute kidney injury [Unknown]
  - Hypersensitivity myocarditis [Unknown]
  - Pyrexia [Unknown]
  - Pulmonary mass [Unknown]
  - Skin lesion [Unknown]
  - Back pain [Unknown]
  - Sepsis [Unknown]
  - Hyperleukocytosis [Unknown]
  - Drug reaction with eosinophilia and systemic symptoms [Unknown]
  - C-reactive protein increased [Unknown]
  - Abdominal pain [Unknown]
  - Diarrhoea [Unknown]
  - Haematuria [Unknown]
  - Hepatocellular injury [Unknown]
  - Fatigue [Unknown]

NARRATIVE: CASE EVENT DATE: 20170824
